FAERS Safety Report 8935078 (Version 1)
Quarter: 2012Q4

REPORT INFORMATION
  Report Type: 
  Country: US (occurrence: US)
  Receive Date: 20121129
  Receipt Date: 20121129
  Transmission Date: 20130627
  Serious: No
  Sender: FDA-Public Use
  Company Number: US-ASTRAZENECA-2012SE87147

PATIENT
  Age: 74 Year
  Sex: Female
  Weight: 67.1 kg

DRUGS (5)
  1. NEXIUM [Suspect]
     Route: 048
  2. CRESTOR [Suspect]
     Indication: BLOOD CHOLESTEROL
     Route: 048
  3. CA WITH D [Concomitant]
  4. DIOVAN HCT [Concomitant]
     Indication: BLOOD PRESSURE
  5. VITAMIN B [Concomitant]

REACTIONS (1)
  - Alopecia [Unknown]
